FAERS Safety Report 10228443 (Version 3)
Quarter: 2014Q3

REPORT INFORMATION
  Report Type: Spontaneous
  Country: US (occurrence: US)
  Receive Date: 20140610
  Receipt Date: 20140902
  Transmission Date: 20150326
  Serious: Yes (Hospitalization)
  Sender: FDA-Public Use
  Company Number: US-BAYER-2014-084607

PATIENT
  Age: 39 Year
  Sex: Female
  Weight: 86.17 kg

DRUGS (1)
  1. YASMIN [Suspect]
     Active Substance: DROSPIRENONE\ETHINYL ESTRADIOL
     Dosage: UNK
     Dates: start: 2004, end: 2006

REACTIONS (8)
  - Emotional distress [None]
  - Cervix carcinoma [None]
  - General physical health deterioration [None]
  - Premature baby [None]
  - Mental disorder [None]
  - Injury [None]
  - Pain [None]
  - Deep vein thrombosis [None]

NARRATIVE: CASE EVENT DATE: 200601
